FAERS Safety Report 24554953 (Version 1)
Quarter: 2024Q4

REPORT INFORMATION
  Report Type: Spontaneous
  Country: JP (occurrence: JP)
  Receive Date: 20241028
  Receipt Date: 20241028
  Transmission Date: 20250114
  Serious: Yes (Life-Threatening, Hospitalization, Other)
  Sender: ALKEM
  Company Number: JP-ALKEM LABORATORIES LIMITED-JP-ALKEM-2024-23472

PATIENT
  Age: 46 Year
  Sex: Female
  Weight: 59.6 kg

DRUGS (2)
  1. VANCOMYCIN [Suspect]
     Active Substance: VANCOMYCIN
     Indication: Peritonitis
     Dosage: 30 MILLIGRAM/KILOGRAM
     Route: 042
  2. MEROPENEM [Concomitant]
     Active Substance: MEROPENEM
     Indication: Peritonitis
     Dosage: 0.5 GRAM, QD
     Route: 065

REACTIONS (2)
  - Drug level increased [Recovering/Resolving]
  - Drug reaction with eosinophilia and systemic symptoms [Unknown]
